FAERS Safety Report 12122124 (Version 2)
Quarter: 2016Q1

REPORT INFORMATION
  Report Type: Report from Study
  Country: US (occurrence: US)
  Receive Date: 20160226
  Receipt Date: 20160311
  Transmission Date: 20160526
  Serious: Yes (Death, Hospitalization, Other)
  Sender: FDA-Public Use
  Company Number: US-TAKEDA-2016MPI001262

PATIENT
  Sex: Male

DRUGS (1)
  1. VELCADE [Suspect]
     Active Substance: BORTEZOMIB
     Indication: PLASMA CELL LEUKAEMIA
     Dosage: 1.5 MG, UNK
     Route: 058
     Dates: start: 20160209, end: 20160217

REACTIONS (3)
  - Renal failure [Fatal]
  - Off label use [Unknown]
  - Plasma cell leukaemia [Fatal]
